FAERS Safety Report 12758820 (Version 2)
Quarter: 2016Q3

REPORT INFORMATION
  Report Type: Report from Study
  Country: PA (occurrence: PA)
  Receive Date: 20160919
  Receipt Date: 20160928
  Transmission Date: 20161109
  Serious: Yes (Other)
  Sender: FDA-Public Use
  Company Number: PHHY2016PA126749

PATIENT
  Age: 89 Year
  Sex: Female

DRUGS (7)
  1. EUTEBROL [Concomitant]
     Indication: PRODUCT USED FOR UNKNOWN INDICATION
     Route: 065
  2. ALOPURINOL [Concomitant]
     Active Substance: ALLOPURINOL
     Indication: PRODUCT USED FOR UNKNOWN INDICATION
     Route: 065
  3. HALOPERIDOL. [Concomitant]
     Active Substance: HALOPERIDOL
     Indication: PRODUCT USED FOR UNKNOWN INDICATION
  4. FOLIC ACID. [Concomitant]
     Active Substance: FOLIC ACID
     Indication: PRODUCT USED FOR UNKNOWN INDICATION
  5. CALCIUM [Concomitant]
     Active Substance: CALCIUM
     Indication: PRODUCT USED FOR UNKNOWN INDICATION
  6. EXELON PATCH [Suspect]
     Active Substance: RIVASTIGMINE
     Indication: DEMENTIA ALZHEIMER^S TYPE
     Dosage: 13.3 MG, QD PATCH 15 (CM2)
     Route: 062
  7. VITAMIN B12 [Concomitant]
     Active Substance: CYANOCOBALAMIN
     Indication: PRODUCT USED FOR UNKNOWN INDICATION

REACTIONS (11)
  - Transient ischaemic attack [Recovered/Resolved]
  - Blood cholesterol increased [Not Recovered/Not Resolved]
  - Gait disturbance [Recovering/Resolving]
  - Speech disorder [Recovered/Resolved]
  - Dizziness [Recovered/Resolved]
  - Constipation [Recovering/Resolving]
  - Blood triglycerides increased [Not Recovered/Not Resolved]
  - Hypertension [Unknown]
  - Hypoaesthesia [Recovered/Resolved]
  - Dysstasia [Recovered/Resolved]
  - Tremor [Recovered/Resolved]

NARRATIVE: CASE EVENT DATE: 20160831
